FAERS Safety Report 9062546 (Version 3)
Quarter: 2013Q2

REPORT INFORMATION
  Report Type: Spontaneous
  Country: JP (occurrence: JP)
  Receive Date: 20130213
  Receipt Date: 20130517
  Transmission Date: 20140414
  Serious: Yes (Death, Hospitalization, Other)
  Sender: FDA-Public Use
  Company Number: JP-BAYER-2013-010906

PATIENT
  Age: 61 Year
  Sex: Male
  Weight: 55 kg

DRUGS (14)
  1. NEXAVAR [Suspect]
     Indication: HEPATOCELLULAR CARCINOMA
     Dosage: 400 MG/DAY
     Route: 048
     Dates: start: 20120820, end: 20120909
  2. NEXAVAR [Suspect]
     Indication: HEPATOCELLULAR CARCINOMA
     Dosage: 600 MG/DAY
     Route: 048
     Dates: start: 20120910, end: 20121111
  3. NEXAVAR [Suspect]
     Indication: HEPATOCELLULAR CARCINOMA
     Dosage: 800 MG/DAY
     Route: 048
     Dates: start: 20121112, end: 20121209
  4. NEXAVAR [Suspect]
     Indication: HEPATOCELLULAR CARCINOMA
     Dosage: 600 MG/DAY
     Dates: start: 20121210, end: 20121228
  5. TS 1 [Suspect]
     Dosage: 75 MG, QOD
     Route: 048
     Dates: start: 20121210, end: 20121225
  6. TS 1 [Suspect]
     Dosage: 100 MG, QOD
     Route: 048
     Dates: start: 20121225, end: 20121227
  7. ENTECAVIR [Concomitant]
     Indication: HEPATITIS B
     Dosage: DAILY DOSE .5 MG
     Route: 048
     Dates: start: 20120426, end: 20130124
  8. MEDET [Concomitant]
     Indication: DIABETES MELLITUS
     Dosage: DAILY DOSE 250 MG
     Route: 048
     Dates: start: 20120426, end: 20130124
  9. ZOMETA [Concomitant]
     Indication: METASTASES TO BONE
     Dosage: 4 MG, Q3WK
     Route: 041
     Dates: start: 20120820
  10. SOLDEM 1 [Concomitant]
     Indication: METASTASES TO BONE
     Dosage: 200 ML, Q3WK
     Route: 041
     Dates: start: 20120820
  11. GLIMEPIRIDE [Concomitant]
     Indication: DIABETES MELLITUS
     Dosage: DAILY DOSE 4 MG
     Route: 048
     Dates: start: 20120426, end: 20130124
  12. VOGLIBOSE [Concomitant]
     Indication: DIABETES MELLITUS
     Dosage: DAILY DOSE .9 MG
     Route: 048
     Dates: start: 20120426, end: 20130124
  13. LONGES [Concomitant]
     Indication: HYPERTENSION
     Dosage: DAILY DOSE 10 MG
     Route: 048
     Dates: start: 20120426, end: 20130124
  14. PARIET [Concomitant]
     Indication: GASTRITIS
     Dosage: DAILY DOSE 10 MG
     Route: 048
     Dates: start: 20120426, end: 20130124

REACTIONS (12)
  - Hepatocellular carcinoma [Fatal]
  - Hepatic cirrhosis [Fatal]
  - Dyspnoea [Fatal]
  - Stevens-Johnson syndrome [Recovering/Resolving]
  - Oral mucosa erosion [Recovering/Resolving]
  - Eye discharge [Recovering/Resolving]
  - Hot flush [Recovering/Resolving]
  - Pyrexia [Recovering/Resolving]
  - Erythema multiforme [Recovering/Resolving]
  - White blood cell count decreased [Recovering/Resolving]
  - Diarrhoea [Recovered/Resolved]
  - Diarrhoea [Recovering/Resolving]
